FAERS Safety Report 7496482-1 (Version None)
Quarter: 2011Q2

REPORT INFORMATION
  Report Type: 
  Country: None (occurrence: None)
  Receive Date: 20110523
  Receipt Date: 20110516
  Transmission Date: 20111010
  Serious: Yes (Death, Hospitalization)
  Sender: FDA-Public Use
  Company Number: JP-ROCHE-763254

PATIENT
  Sex: Male

DRUGS (39)
  1. TOCILIZUMAB [Suspect]
     Route: 041
     Dates: start: 20090831, end: 20090831
  2. FOLIC ACID [Concomitant]
     Route: 048
  3. PANCREAZE [Concomitant]
     Dosage: DRUG: EXCELASE(SANACTASE COMBINED DRUG)
     Route: 048
     Dates: start: 20100216, end: 20100815
  4. LANSOPRAZOLE [Concomitant]
     Route: 048
     Dates: start: 20100216, end: 20100815
  5. MUCOSOLVAN [Concomitant]
     Dosage: DRUG: MUCOSOLVAN (AMBROXOL HYDROCHLORIDE)
     Route: 048
     Dates: start: 20100216, end: 20100815
  6. METHOTREXATE [Concomitant]
     Route: 048
     Dates: start: 20100216, end: 20100726
  7. TOCILIZUMAB [Suspect]
     Route: 041
     Dates: start: 20090511, end: 20090511
  8. TOCILIZUMAB [Suspect]
     Route: 041
     Dates: start: 20090706, end: 20090706
  9. TOCILIZUMAB [Suspect]
     Route: 041
     Dates: start: 20091228, end: 20091228
  10. TOCILIZUMAB [Suspect]
     Route: 041
     Dates: start: 20100125, end: 20100125
  11. TOCILIZUMAB [Suspect]
     Route: 041
     Dates: start: 20100222, end: 20100222
  12. TOCILIZUMAB [Suspect]
     Route: 041
     Dates: start: 20100412, end: 20100412
  13. RIMATIL [Concomitant]
     Route: 048
     Dates: start: 20100216, end: 20100815
  14. MUCOSTA [Concomitant]
     Route: 048
     Dates: start: 20100216, end: 20100815
  15. TOCILIZUMAB [Suspect]
     Route: 041
     Dates: start: 20090413, end: 20090413
  16. PREDNISOLONE [Concomitant]
     Route: 048
     Dates: start: 20100216, end: 20100815
  17. ZOLPIDEM TARTRATE [Concomitant]
     Dosage: DRUG: MYSLEE(ZOLPIDEM TARTRATE)
     Route: 048
     Dates: start: 20100216, end: 20100715
  18. SULFASALAZINE [Concomitant]
     Dosage: DRUG: ASASURFAN(SALAZOSULFAPYRIDINE)
     Route: 048
     Dates: start: 20100216, end: 20100815
  19. GASMOTIN [Concomitant]
     Dosage: FORM: PERORAL AGENT, DRUG: GASMOTIN(MOSAPRIDE CITRATE HYDRATE)
     Route: 048
     Dates: start: 20100216, end: 20100815
  20. OMEPRAZOLE [Concomitant]
     Route: 048
     Dates: start: 20100216, end: 20100627
  21. TOCILIZUMAB [Suspect]
     Indication: RHEUMATOID ARTHRITIS
     Route: 041
     Dates: start: 20090216, end: 20090216
  22. TOCILIZUMAB [Suspect]
     Route: 041
     Dates: start: 20100517, end: 20100517
  23. PREDNISOLONE [Concomitant]
     Route: 048
  24. LEVOFLOXACIN [Concomitant]
     Dosage: DRUG: CRAVIT (LEVOFLOXACIN HYDRATE)
     Route: 048
     Dates: start: 20100216, end: 20100630
  25. EVAMYL [Concomitant]
     Route: 048
     Dates: start: 20100716, end: 20100815
  26. TOCILIZUMAB [Suspect]
     Route: 041
     Dates: start: 20090608, end: 20090608
  27. TOCILIZUMAB [Suspect]
     Route: 041
     Dates: start: 20091026, end: 20091026
  28. MUCODYNE [Concomitant]
     Route: 048
     Dates: start: 20100216, end: 20100815
  29. LAC-B [Concomitant]
     Route: 048
     Dates: start: 20100702, end: 20100815
  30. TOCILIZUMAB [Suspect]
     Route: 041
     Dates: start: 20090316, end: 20090316
  31. FOLIC ACID [Concomitant]
     Route: 048
     Dates: start: 20100216, end: 20100726
  32. SODIUM AUROTHIOMALATE [Concomitant]
     Route: 030
     Dates: start: 20100216, end: 20100627
  33. MACMET [Concomitant]
     Route: 048
     Dates: start: 20100216, end: 20100627
  34. TOCILIZUMAB [Suspect]
     Route: 041
     Dates: start: 20090803, end: 20090803
  35. TOCILIZUMAB [Suspect]
     Route: 041
     Dates: start: 20091130, end: 20091130
  36. PREDNISOLONE [Concomitant]
     Route: 048
     Dates: start: 20100803, end: 20100815
  37. TOCILIZUMAB [Suspect]
     Route: 041
     Dates: start: 20090928, end: 20090928
  38. TOCILIZUMAB [Suspect]
     Route: 041
     Dates: start: 20100315, end: 20100315
  39. AZULFIDINE [Concomitant]
     Route: 048

REACTIONS (4)
  - DECREASED APPETITE [None]
  - SPINAL COMPRESSION FRACTURE [None]
  - PLEURISY [None]
  - MALNUTRITION [None]
